FAERS Safety Report 12798473 (Version 1)
Quarter: 2016Q3

REPORT INFORMATION
  Report Type: Spontaneous
  Country: US (occurrence: US)
  Receive Date: 20160930
  Receipt Date: 20160930
  Transmission Date: 20161109
  Serious: No
  Sender: FDA-Public Use
  Company Number: US-ASTRAZENECA-2016SF02451

PATIENT
  Age: 812 Month
  Sex: Female
  Weight: 65.8 kg

DRUGS (5)
  1. ARIMIDEX [Suspect]
     Active Substance: ANASTROZOLE
     Indication: NEOPLASM MALIGNANT
     Route: 048
     Dates: start: 20150925, end: 20160901
  2. LOSARTAN. [Concomitant]
     Active Substance: LOSARTAN
     Indication: HYPERTENSION
  3. LYRICA [Concomitant]
     Active Substance: PREGABALIN
  4. GABAPENTIN. [Suspect]
     Active Substance: GABAPENTIN
     Indication: NERVE INJURY
     Route: 048
     Dates: start: 20160329, end: 20160429
  5. AMLODIPINE [Concomitant]
     Active Substance: AMLODIPINE BESYLATE
     Indication: HYPERTENSION

REACTIONS (5)
  - Intervertebral disc protrusion [Unknown]
  - Insomnia [Recovered/Resolved]
  - Emotional disorder [Recovered/Resolved]
  - Arthralgia [Unknown]
  - Nerve injury [Unknown]

NARRATIVE: CASE EVENT DATE: 201604
